FAERS Safety Report 5227740-9 (Version None)
Quarter: 2007Q1

REPORT INFORMATION
  Report Type: 
  Country: None (occurrence: None)
  Receive Date: 20070202
  Receipt Date: 20070123
  Transmission Date: 20070707
  Serious: Yes (Other)
  Sender: FDA-Public Use
  Company Number: BG-PFIZER INC-2007007848

PATIENT
  Age: 45 Year
  Sex: Female

DRUGS (1)
  1. ZYRTEC [Suspect]
     Dosage: DAILY DOSE:10MG
     Route: 048
     Dates: start: 20010410, end: 20030324

REACTIONS (1)
  - ATRIOVENTRICULAR BLOCK [None]
